FAERS Safety Report 20663865 (Version 1)
Quarter: 2022Q2

REPORT INFORMATION
  Report Type: Spontaneous
  Country: US (occurrence: US)
  Receive Date: 20220401
  Receipt Date: 20220401
  Transmission Date: 20220721
  Serious: No
  Sender: FDA-Public Use
  Company Number: US-PFIZER INC-2020143995

PATIENT
  Age: 60 Year
  Sex: Female
  Weight: 113.4 kg

DRUGS (1)
  1. IBRANCE [Suspect]
     Active Substance: PALBOCICLIB
     Indication: Breast cancer metastatic
     Dosage: 125 MG, 21 DAYS
     Dates: start: 201904

REACTIONS (2)
  - Depression [Unknown]
  - Dry skin [Not Recovered/Not Resolved]
